FAERS Safety Report 18489374 (Version 2)
Quarter: 2021Q1

REPORT INFORMATION
  Report Type: Other
  Country: JP (occurrence: JP)
  Receive Date: 20201111
  Receipt Date: 20210209
  Transmission Date: 20210419
  Serious: Yes (Hospitalization, Other)
  Sender: FDA-Public Use
  Company Number: JP-ROCHE-2712455

PATIENT
  Age: 48 Year
  Sex: Male
  Weight: 54 kg

DRUGS (2)
  1. ENTRECTINIB [Suspect]
     Active Substance: ENTRECTINIB
     Indication: NON-SMALL CELL LUNG CANCER
     Dosage: DOSAGE IS UNCERTAIN.
     Route: 048
     Dates: start: 20200730, end: 20200806
  2. ENTRECTINIB [Suspect]
     Active Substance: ENTRECTINIB
     Dosage: DOSAGE IS UNCERTAIN.
     Route: 048
     Dates: start: 20200811, end: 20200812

REACTIONS (6)
  - Seizure [Unknown]
  - Pyrexia [Unknown]
  - Cognitive disorder [Recovering/Resolving]
  - Ataxia [Recovering/Resolving]
  - Amnesia [Recovering/Resolving]
  - Headache [Unknown]

NARRATIVE: CASE EVENT DATE: 20200812
